FAERS Safety Report 6742555-8 (Version None)
Quarter: 2010Q2

REPORT INFORMATION
  Report Type: 
  Country: None (occurrence: None)
  Receive Date: 20100526
  Receipt Date: 20100517
  Transmission Date: 20101027
  Serious: Yes (Hospitalization, Other)
  Sender: FDA-Public Use
  Company Number: US-AMGEN-QUU390023

PATIENT
  Sex: Male
  Weight: 76.7 kg

DRUGS (1)
  1. ENBREL [Suspect]
     Indication: RHEUMATOID ARTHRITIS
     Route: 058
     Dates: start: 20070801

REACTIONS (8)
  - ATRIAL FIBRILLATION [None]
  - CARDIAC DISORDER [None]
  - COLONIC POLYP [None]
  - CONTUSION [None]
  - CORONARY ARTERY OCCLUSION [None]
  - DIALYSIS [None]
  - RECTAL HAEMORRHAGE [None]
  - RENAL FAILURE CHRONIC [None]
